FAERS Safety Report 7531806-8 (Version None)
Quarter: 2011Q2

REPORT INFORMATION
  Report Type: 
  Country: None (occurrence: None)
  Receive Date: 20110608
  Receipt Date: 20110524
  Transmission Date: 20111010
  Serious: No
  Sender: FDA-Public Use
  Company Number: US-B.I. PHARMACEUTICALS,INC./RIDGEFIELD-2011-BP-12047BP

PATIENT
  Sex: Female

DRUGS (13)
  1. PRADAXA [Suspect]
     Indication: CEREBROVASCULAR ACCIDENT PROPHYLAXIS
  2. LABETALOL [Concomitant]
     Indication: HYPERTENSION
     Route: 048
  3. LOSARTAN POTASSIUM [Concomitant]
     Indication: HYPERTENSION
     Dosage: 50 MG
     Route: 048
  4. MULTIVIT [Concomitant]
  5. PRADAXA [Suspect]
     Indication: ATRIAL FIBRILLATION
     Dosage: 300 MG
     Route: 048
     Dates: start: 20110126
  6. FISH OIL [Concomitant]
  7. CEPHALEXIN [Concomitant]
     Dosage: 500 MG
  8. EXELON [Concomitant]
     Indication: DELIRIUM
  9. CRANBERRY TABLET [Concomitant]
  10. SIMVASTATIN [Concomitant]
     Indication: BLOOD CHOLESTEROL INCREASED
     Route: 048
  11. CALCIUM CARBONATE [Concomitant]
  12. VIT C [Concomitant]
  13. GLUC/CONDROIT [Concomitant]

REACTIONS (2)
  - CONTUSION [None]
  - URINARY TRACT INFECTION [None]
